FAERS Safety Report 8156441-2 (Version None)
Quarter: 2012Q1

REPORT INFORMATION
  Report Type: 
  Country: None (occurrence: None)
  Receive Date: 20120216
  Receipt Date: 20120206
  Transmission Date: 20120608
  Serious: Yes (Other)
  Sender: FDA-Public Use
  Company Number: 2012P1004195

PATIENT
  Age: 23 Year
  Sex: Male

DRUGS (2)
  1. HYDROCODONE/ACETAMINOPHEN (NO PREF. NAME) [Suspect]
     Indication: INTENTIONAL OVERDOSE
     Dosage: X1; PO
     Route: 048
  2. ALPRAZOLAM [Suspect]
     Indication: INTENTIONAL OVERDOSE
     Dosage: 42 TAB; X1; PO
     Route: 048

REACTIONS (5)
  - SINUS BRADYCARDIA [None]
  - INCORRECT DOSE ADMINISTERED [None]
  - ATRIOVENTRICULAR BLOCK SECOND DEGREE [None]
  - SELF-MEDICATION [None]
  - REFUSAL OF TREATMENT BY PATIENT [None]
